FAERS Safety Report 5147265-9 (Version None)
Quarter: 2006Q4

REPORT INFORMATION
  Report Type: 
  Country: None (occurrence: None)
  Receive Date: 20061103
  Receipt Date: 20061021
  Transmission Date: 20070319
  Serious: Yes (Other)
  Sender: FDA-Public Use
  Company Number: 2006105338

PATIENT
  Age: 24 Year
  Sex: Male

DRUGS (5)
  1. GEODON [Suspect]
     Indication: SCHIZOAFFECTIVE DISORDER
     Dosage: 160 MG (2 IN 1 D)
     Dates: start: 20060221
  2. KLONOPIN [Concomitant]
  3. VISTARIL [Concomitant]
  4. ZYPREXA [Concomitant]
  5. LAMICTAL [Concomitant]

REACTIONS (3)
  - COGNITIVE DISORDER [None]
  - DELUSIONAL DISORDER, PERSECUTORY TYPE [None]
  - HALLUCINATION [None]
